FAERS Safety Report 7476226-X (Version None)
Quarter: 2011Q2

REPORT INFORMATION
  Report Type: 
  Country: None (occurrence: None)
  Receive Date: 20110505
  Receipt Date: 20110427
  Transmission Date: 20111010
  Serious: Yes (Life-Threatening, Hospitalization, Other)
  Sender: FDA-Public Use
  Company Number: 2010AC000554

PATIENT
  Age: 76 Year
  Sex: Female
  Weight: 58.9676 kg

DRUGS (32)
  1. DOPAMINE HCL [Concomitant]
  2. GENTAMYCIN SULFATE [Concomitant]
  3. DARVOCET [Concomitant]
  4. ALDACTONE [Concomitant]
  5. BRETHINE [Concomitant]
  6. LOVENOX [Concomitant]
  7. COREG [Concomitant]
  8. VASOTEC [Concomitant]
  9. AMBIEN CR [Concomitant]
  10. VITAMIN K TAB [Concomitant]
  11. SYNTHROID [Concomitant]
  12. COUMADIN [Concomitant]
  13. K-DUR [Concomitant]
  14. PROTONIX [Concomitant]
  15. SUBLIMAZE PRESERVATIVE FREE [Concomitant]
  16. PROMETHAZINE [Concomitant]
  17. GAS-EX [Concomitant]
  18. DIGIBIND [Concomitant]
  19. MYLICON [Concomitant]
  20. NICOBID [Concomitant]
  21. ANCEF [Concomitant]
  22. MAGNESIUM SULFATE [Concomitant]
  23. MAGNESIUM OXIDE [Concomitant]
  24. DIGOXIN [Suspect]
     Indication: ATRIAL FIBRILLATION
     Dosage: 0.25 MG;QD;PO
     Route: 048
     Dates: start: 20080110, end: 20080202
  25. ATROPINE [Concomitant]
  26. ZOFRAN [Concomitant]
  27. DIPRIVAN [Concomitant]
  28. VERSED [Concomitant]
  29. PERCOCET [Concomitant]
  30. PEPCID [Concomitant]
  31. VICODIN [Concomitant]
  32. CORDARONE [Concomitant]

REACTIONS (49)
  - NAUSEA [None]
  - BLOOD ALBUMIN DECREASED [None]
  - ARTERIOSCLEROSIS CORONARY ARTERY [None]
  - DIASTOLIC DYSFUNCTION [None]
  - SNORING [None]
  - GASTRITIS [None]
  - BLOOD PRESSURE DECREASED [None]
  - ELECTROCARDIOGRAM T WAVE ABNORMAL [None]
  - ELECTROCARDIOGRAM ST-T CHANGE [None]
  - CARDIOACTIVE DRUG LEVEL ABOVE THERAPEUTIC [None]
  - RENAL FAILURE [None]
  - HEART RATE IRREGULAR [None]
  - MYOCARDIAL ISCHAEMIA [None]
  - LEFT VENTRICULAR HYPERTROPHY [None]
  - SLEEP APNOEA SYNDROME [None]
  - DYSPEPSIA [None]
  - NECK PAIN [None]
  - MUSCULOSKELETAL PAIN [None]
  - ECONOMIC PROBLEM [None]
  - UNEVALUABLE EVENT [None]
  - CARDIAC DISORDER [None]
  - HEART RATE DECREASED [None]
  - BLOOD UREA INCREASED [None]
  - MYOCARDIAL INFARCTION [None]
  - TOOTHACHE [None]
  - CORNEAL OPACITY [None]
  - AORTIC VALVE SCLEROSIS [None]
  - TRICUSPID VALVE INCOMPETENCE [None]
  - ANAEMIA [None]
  - CHRONIC OBSTRUCTIVE PULMONARY DISEASE [None]
  - LOSS OF CONSCIOUSNESS [None]
  - TOXICITY TO VARIOUS AGENTS [None]
  - DIZZINESS [None]
  - BLOOD SODIUM DECREASED [None]
  - CARDIOMYOPATHY [None]
  - PERICARDIAL EFFUSION [None]
  - AORTIC STENOSIS [None]
  - MITRAL VALVE CALCIFICATION [None]
  - HYPOAESTHESIA [None]
  - ATRIAL FIBRILLATION [None]
  - BLOOD POTASSIUM INCREASED [None]
  - ASTHENIA [None]
  - ABDOMINAL DISCOMFORT [None]
  - CARDIAC FAILURE [None]
  - DYSPNOEA [None]
  - MULTIPLE INJURIES [None]
  - SINUS BRADYCARDIA [None]
  - MITRAL VALVE INCOMPETENCE [None]
  - MALAISE [None]
